FAERS Safety Report 5194389-6 (Version None)
Quarter: 2006Q4

REPORT INFORMATION
  Report Type: 
  Country: None (occurrence: None)
  Receive Date: 20061228
  Receipt Date: 20061219
  Transmission Date: 20070319
  Serious: Yes (Hospitalization)
  Sender: FDA-Public Use
  Company Number: FR-PFIZER INC-2006155049

PATIENT
  Age: 87 Year
  Sex: Female

DRUGS (3)
  1. ALDACTONE [Suspect]
     Route: 048
     Dates: start: 20061024, end: 20061030
  2. VALSARTAN AND HYDROCHLOROTHIAZIDE [Suspect]
     Route: 048
     Dates: start: 20061024, end: 20061030
  3. LASIX [Suspect]
     Route: 048

REACTIONS (3)
  - HYPONATRAEMIA [None]
  - MALAISE [None]
  - RENAL FAILURE ACUTE [None]
